FAERS Safety Report 19640741 (Version 1)
Quarter: 2021Q3

REPORT INFORMATION
  Report Type: Spontaneous
  Country: US (occurrence: US)
  Receive Date: 20210730
  Receipt Date: 20210730
  Transmission Date: 20211014
  Serious: Yes (Other)
  Sender: FDA-Public Use
  Company Number: US-DENTSPLY PHARMACEUTICAL-2020SCDP000242

PATIENT

DRUGS (3)
  1. LIDOCAINE HCL [Suspect]
     Active Substance: LIDOCAINE HYDROCHLORIDE
     Dosage: POSTOPERATIVE IV LIDOCAINE
     Route: 042
  2. KETAMINE [Concomitant]
     Active Substance: KETAMINE
     Indication: ANAESTHESIA
     Dosage: UNK
     Route: 042
  3. LIDOCAINE HCL [Suspect]
     Active Substance: LIDOCAINE HYDROCHLORIDE
     Indication: ANAESTHESIA
     Dosage: INTRAOPERATIVE IV LIDOCAINE
     Route: 042

REACTIONS (5)
  - Muscle twitching [Recovered/Resolved]
  - Drug level increased [Unknown]
  - Dizziness [Unknown]
  - Dysgeusia [Unknown]
  - Paraesthesia oral [Unknown]
